FAERS Safety Report 4550936-6 (Version None)
Quarter: 2004Q4

REPORT INFORMATION
  Report Type: 
  Country: None (occurrence: None)
  Receive Date: 20041217
  Receipt Date: 20040819
  Transmission Date: 20050328
  Serious: No
  Sender: FDA-Public Use
  Company Number: 2004-BP-07068BP(0)

PATIENT
  Age: 64 Year
  Sex: Female

DRUGS (9)
  1. SPIRIVA [Suspect]
     Indication: CHRONIC OBSTRUCTIVE AIRWAYS DISEASE
     Dosage: 18 MCG(18 MCG, ONCEDAILY)IH
     Route: 055
     Dates: start: 20040701
  2. SPIRIVA [Suspect]
     Indication: EMPHYSEMA
     Dosage: 18 MCG(18 MCG, ONCEDAILY)IH
     Route: 055
     Dates: start: 20040701
  3. OXYGEN (OXYGEN) [Concomitant]
  4. HUMBIDO *GUAIFENESIN) [Concomitant]
  5. ENALAPRIL (ENALAPRIL) [Concomitant]
  6. BRETHINE [Concomitant]
  7. ALBURTEROL (SALBUTAMOL) [Concomitant]
  8. ATROVENT [Concomitant]
  9. ALLEGRA [Concomitant]

REACTIONS (3)
  - CONSTIPATION [None]
  - EYE DISORDER [None]
  - SINUS DISORDER [None]
